FAERS Safety Report 7575953-3 (Version None)
Quarter: 2011Q2

REPORT INFORMATION
  Report Type: 
  Country: None (occurrence: None)
  Receive Date: 20110628
  Receipt Date: 20070726
  Transmission Date: 20111010
  Serious: No
  Sender: FDA-Public Use
  Company Number: 2007BI016084

PATIENT
  Sex: Female

DRUGS (1)
  1. TYSABRI [Suspect]
     Indication: MULTIPLE SCLEROSIS
     Route: 042
     Dates: start: 20070611

REACTIONS (8)
  - BACK PAIN [None]
  - JOINT SPRAIN [None]
  - FALL [None]
  - HYPERTENSION [None]
  - HEARING IMPAIRED [None]
  - MIGRAINE [None]
  - HYPOAESTHESIA [None]
  - FATIGUE [None]
